FAERS Safety Report 21245616 (Version 1)
Quarter: 2022Q3

REPORT INFORMATION
  Report Type: Spontaneous
  Country: CN (occurrence: CN)
  Receive Date: 20220824
  Receipt Date: 20220824
  Transmission Date: 20221027
  Serious: Yes (Other)
  Sender: FDA-Public Use
  Company Number: CN-AstraZeneca-2022A286833

PATIENT

DRUGS (2)
  1. GOSERELIN [Suspect]
     Active Substance: GOSERELIN
     Indication: Uterine leiomyoma
     Dosage: 3.6 MILLIGRAM, QD
     Route: 058
     Dates: start: 20220808, end: 20220808
  2. ZOLADEX [Suspect]
     Active Substance: GOSERELIN ACETATE
     Indication: Uterine leiomyoma
     Dosage: UNK
     Route: 065

REACTIONS (3)
  - Chest discomfort [Recovering/Resolving]
  - Dizziness [Recovering/Resolving]
  - Nausea [Recovering/Resolving]

NARRATIVE: CASE EVENT DATE: 20220808
